FAERS Safety Report 16808737 (Version 1)
Quarter: 2019Q3

REPORT INFORMATION
  Report Type: Spontaneous
  Country: CZ (occurrence: CZ)
  Receive Date: 20190916
  Receipt Date: 20190916
  Transmission Date: 20191005
  Serious: Yes (Other)
  Sender: FDA-Public Use
  Company Number: CZ-ROCHE-2404190

PATIENT
  Age: 44 Year
  Sex: Female

DRUGS (2)
  1. OMALIZUMAB. [Suspect]
     Active Substance: OMALIZUMAB
     Indication: DERMATITIS ATOPIC
     Dosage: 450 MG, Q2W
     Route: 065
     Dates: start: 201512, end: 201610
  2. CICLOSPORIN A [Concomitant]
     Active Substance: CYCLOSPORINE
     Indication: DERMATITIS ATOPIC
     Dosage: UNK
     Route: 065
     Dates: start: 201406, end: 201512

REACTIONS (6)
  - Pyrexia [Recovered/Resolved]
  - Dermatitis atopic [Unknown]
  - Product use in unapproved indication [Unknown]
  - Off label use [Unknown]
  - Condition aggravated [Unknown]
  - Pruritus [Unknown]
